FAERS Safety Report 7781407-1 (Version None)
Quarter: 2011Q3

REPORT INFORMATION
  Report Type: 
  Country: None (occurrence: None)
  Receive Date: 20110923
  Receipt Date: 20110915
  Transmission Date: 20111222
  Serious: Yes (Death)
  Sender: FDA-Public Use
  Company Number: LEO-2011-00701

PATIENT
  Age: 51 Year
  Sex: Female

DRUGS (12)
  1. CELLUVISC (CARMELLOSE SODIUM) [Concomitant]
  2. AUGMENTIN (AMOXICILLIN SODIUM, CLAVULANATE POTASSIUM) [Concomitant]
  3. SPASFON (PHLOROGLUCINOL, TRIMETHYLPHLOROGLUCINOL) [Concomitant]
  4. SERETIDE (FLUTICASONE PROPIONATE, SALMETEROL XINAFOATE) [Concomitant]
  5. PROTIFAR (MINERALS NOS, CARBOHYDRATES NOS, PROTENS NOS, LIPIDS NOS) [Concomitant]
  6. INNOHEP [Suspect]
     Indication: SUPERIOR VENA CAVA SYNDROME
     Dosage: 10000 IU,SUBCUTANEOUS
     Route: 058
     Dates: start: 20110428, end: 20110611
  7. NEXIUM [Concomitant]
  8. AMOXICILLIN [Concomitant]
  9. TOLEXINE (DOXYCYCLINE) [Concomitant]
  10. MUCOMYST [Concomitant]
  11. TARCEVA [Suspect]
     Indication: LUNG ADENOCARCINOMA
     Dosage: 150 MG,ORAL
     Route: 048
     Dates: start: 20110422, end: 20110611
  12. SPIRIVA [Concomitant]

REACTIONS (8)
  - OFF LABEL USE [None]
  - INCORRECT DRUG ADMINISTRATION DURATION [None]
  - HAEMOGLOBIN DECREASED [None]
  - TUMOUR NECROSIS [None]
  - NEOPLASM PROGRESSION [None]
  - HAEMOPTYSIS [None]
  - MEDIASTINITIS [None]
  - LUNG ADENOCARCINOMA METASTATIC [None]
